FAERS Safety Report 7978664-5 (Version None)
Quarter: 2011Q4

REPORT INFORMATION
  Report Type: 
  Country: None (occurrence: None)
  Receive Date: 20111214
  Receipt Date: 20111205
  Transmission Date: 20120403
  Serious: Yes (Hospitalization)
  Sender: FDA-Public Use
  Company Number: BR-US-EMD SERONO, INC.-7095431

PATIENT
  Sex: Female

DRUGS (3)
  1. REBIF [Suspect]
     Dates: start: 20110319
  2. REBIF [Suspect]
     Indication: MULTIPLE SCLEROSIS
     Dates: start: 20100801
  3. SERTRALINE HYDROCHLORIDE [Concomitant]
     Dates: start: 20100801

REACTIONS (2)
  - URINARY TRACT INFECTION [None]
  - MULTIPLE SCLEROSIS RELAPSE [None]
